FAERS Safety Report 10036415 (Version 2)
Quarter: 2014Q1

REPORT INFORMATION
  Report Type: Spontaneous
  Country: US (occurrence: US)
  Receive Date: 20140325
  Receipt Date: 20140325
  Transmission Date: 20141002
  Serious: Yes (Disabling)
  Sender: FDA-Public Use
  Company Number: US-GE HEALTHCARE MEDICAL DIAGNOSTICS-OSCN-PR-0811S-0595

PATIENT
  Age: 52 Year
  Sex: Male

DRUGS (5)
  1. OMNISCAN [Suspect]
     Indication: CEREBROVASCULAR ACCIDENT
     Route: 042
     Dates: start: 20061129, end: 20061129
  2. OMNISCAN [Suspect]
     Indication: COLITIS ISCHAEMIC
     Route: 042
     Dates: start: 20061212, end: 20061212
  3. OMNISCAN [Suspect]
     Indication: COLITIS ISCHAEMIC
     Route: 042
     Dates: start: 20061214, end: 20061214
  4. MULTIHANCE [Suspect]
     Indication: FUNGAEMIA
     Route: 042
     Dates: start: 20070228, end: 20070228
  5. ISOVUE [Concomitant]
     Route: 042
     Dates: start: 20090430, end: 20090430

REACTIONS (1)
  - Nephrogenic systemic fibrosis [Not Recovered/Not Resolved]
